FAERS Safety Report 22721795 (Version 6)
Quarter: 2023Q4

REPORT INFORMATION
  Report Type: Report from Study
  Country: GB (occurrence: GB)
  Receive Date: 20230719
  Receipt Date: 20231120
  Transmission Date: 20240109
  Serious: Yes (Hospitalization)
  Sender: FDA-Public Use
  Company Number: GB-002147023-NVSC2023GB120825

PATIENT
  Age: 78 Year
  Sex: Male
  Weight: 81 kg

DRUGS (15)
  1. PLUVICTO [Suspect]
     Active Substance: LUTETIUM LU-177 VIPIVOTIDE TETRAXETAN
     Indication: Prostate cancer metastatic
     Dosage: 7161.7 MBQ, ONCE/SINGLE
     Route: 042
     Dates: start: 20220902, end: 20230306
  2. LOCAMETZ [Suspect]
     Active Substance: PSMA-HBED-CC
     Indication: Prostate cancer metastatic
     Dosage: 175 MBQ, ONCE/SINGLE
     Route: 042
     Dates: start: 20220804, end: 20230306
  3. QUININE SULFATE [Concomitant]
     Active Substance: QUININE SULFATE
     Indication: Rotator cuff syndrome
     Dosage: UNK
     Route: 065
     Dates: start: 2012
  4. QUININE SULFATE [Concomitant]
     Active Substance: QUININE SULFATE
     Indication: Osteoarthritis
  5. OMEPRAZOLE [Concomitant]
     Active Substance: OMEPRAZOLE
     Indication: Gastrooesophageal reflux prophylaxis
     Dosage: UNK
     Route: 065
     Dates: start: 20120615
  6. AMLODIPINE [Concomitant]
     Active Substance: AMLODIPINE BESYLATE
     Indication: Essential hypertension
     Dosage: UNK
     Route: 065
     Dates: start: 2016
  7. TRAMADOL [Concomitant]
     Active Substance: TRAMADOL\TRAMADOL HYDROCHLORIDE
     Indication: Back pain
     Dosage: UNK
     Route: 065
     Dates: start: 2016
  8. TRAMADOL [Concomitant]
     Active Substance: TRAMADOL\TRAMADOL HYDROCHLORIDE
     Indication: Pelvic pain
  9. TROSPIUM [Concomitant]
     Active Substance: TROSPIUM
     Indication: Pollakiuria
     Dosage: UNK
     Route: 065
     Dates: start: 2020
  10. LISINOPRIL [Concomitant]
     Active Substance: LISINOPRIL
     Indication: Essential hypertension
     Dosage: UNK
     Route: 065
     Dates: start: 20220403
  11. RIVAROXABAN [Concomitant]
     Active Substance: RIVAROXABAN
     Indication: Pulmonary embolism
     Dosage: UNK
     Route: 065
     Dates: start: 20220403
  12. LOPERAMIDE [Concomitant]
     Active Substance: LOPERAMIDE
     Indication: Diarrhoea
     Dosage: UNK
     Route: 065
     Dates: start: 20220831
  13. ONDANSETRON [Concomitant]
     Active Substance: ONDANSETRON
     Indication: Nausea
     Dosage: UNK
     Route: 065
     Dates: start: 20220902
  14. ONDANSETRON [Concomitant]
     Active Substance: ONDANSETRON
     Indication: Vomiting
  15. FUROSEMIDE [Concomitant]
     Active Substance: FUROSEMIDE
     Indication: Oedema peripheral
     Dosage: UNK
     Route: 065
     Dates: start: 20220921

REACTIONS (1)
  - Infection [Recovered/Resolved]

NARRATIVE: CASE EVENT DATE: 20230505
